FAERS Safety Report 17806823 (Version 1)
Quarter: 2020Q2

REPORT INFORMATION
  Report Type: Spontaneous
  Country: IN (occurrence: IN)
  Receive Date: 20200520
  Receipt Date: 20200520
  Transmission Date: 20200714
  Serious: Yes (Other)
  Sender: FDA-Public Use
  Company Number: IN-GLENMARK PHARMACEUTICALS-2020GMK047773

PATIENT

DRUGS (1)
  1. TELMA 40 [Suspect]
     Active Substance: TELMISARTAN
     Indication: PRODUCT USED FOR UNKNOWN INDICATION
     Dosage: UNK
     Route: 048

REACTIONS (2)
  - Foreign body in throat [Recovered/Resolved]
  - Accidental exposure to product by child [Unknown]

NARRATIVE: CASE EVENT DATE: 20200506
